FAERS Safety Report 12552794 (Version 1)
Quarter: 2016Q3

REPORT INFORMATION
  Report Type: Spontaneous
  Country: US (occurrence: None)
  Receive Date: 20160712
  Receipt Date: 20160712
  Transmission Date: 20161109
  Serious: Yes (Hospitalization, Other)
  Sender: FDA-Public Use
  Company Number: None

PATIENT
  Age: 21 Year
  Sex: Male
  Weight: 70.31 kg

DRUGS (1)
  1. SECUKINUMAB, 300 MG AND 150 MG NOVARTIS [Suspect]
     Active Substance: SECUKINUMAB
     Indication: PSORIASIS
     Route: 058

REACTIONS (3)
  - Eczema [None]
  - Rash [None]
  - Fine motor skill dysfunction [None]

NARRATIVE: CASE EVENT DATE: 20160518
